FAERS Safety Report 17415419 (Version 5)
Quarter: 2020Q4

REPORT INFORMATION
  Report Type: Spontaneous
  Country: US (occurrence: US)
  Receive Date: 20200213
  Receipt Date: 20201026
  Transmission Date: 20210113
  Serious: No
  Sender: FDA-Public Use
  Company Number: US-SA-2020SA036458

PATIENT

DRUGS (3)
  1. CAPRELSA [Suspect]
     Active Substance: VANDETANIB
     Indication: THYROID CANCER
     Dosage: 200 MG, QD
     Route: 048
     Dates: start: 20200125
  2. CAPRELSA [Suspect]
     Active Substance: VANDETANIB
     Dosage: 100 MG, QD
     Route: 048
  3. CAPRELSA [Suspect]
     Active Substance: VANDETANIB
     Dosage: 200 MG, QD
     Route: 048

REACTIONS (16)
  - Blood calcitonin increased [Unknown]
  - Lacrimation increased [Unknown]
  - Pigmentation disorder [Unknown]
  - Rash [Unknown]
  - Flatulence [Unknown]
  - Dry mouth [Unknown]
  - Dry skin [Unknown]
  - Diarrhoea [Unknown]
  - Fatigue [Unknown]
  - Ageusia [Not Recovered/Not Resolved]
  - Balance disorder [Unknown]
  - Weight decreased [Recovered/Resolved]
  - Dry eye [Unknown]
  - Anosmia [Unknown]
  - Vision blurred [Unknown]
  - Wrong technique in product usage process [Unknown]
